FAERS Safety Report 9171064 (Version 1)
Quarter: 2013Q1

REPORT INFORMATION
  Report Type: Spontaneous
  Country: GR (occurrence: None)
  Receive Date: 20130312
  Receipt Date: 20130312
  Transmission Date: 20140127
  Serious: Yes (Other)
  Sender: FDA-Public Use
  Company Number: 2013-000640

PATIENT
  Age: 65 Year
  Sex: Female

DRUGS (2)
  1. RISEDRONATE [Suspect]
     Indication: OSTEOPOROSIS
     Route: 048
  2. ALENDRONATE (ALENDRONATE SODIUM) [Suspect]

REACTIONS (3)
  - Atypical femur fracture [None]
  - Fracture delayed union [None]
  - Pain in extremity [None]
